FAERS Safety Report 24437556 (Version 1)
Quarter: 2024Q4

REPORT INFORMATION
  Report Type: Spontaneous
  Country: US (occurrence: US)
  Receive Date: 20241015
  Receipt Date: 20241015
  Transmission Date: 20250115
  Serious: No
  Sender: BAYER HEALTHCARE LLC
  Company Number: US-BAYER-2024A144915

PATIENT
  Age: 71 Year
  Sex: Female

DRUGS (2)
  1. MIRALAX [Suspect]
     Active Substance: POLYETHYLENE GLYCOL 3350
     Indication: Colonoscopy
     Dosage: UNK
     Route: 048
     Dates: start: 20241006, end: 20241007
  2. Dulcolax [Concomitant]
     Indication: Colonoscopy
     Dosage: 8 DF
     Route: 048
     Dates: start: 20241005, end: 20241006

REACTIONS (6)
  - Nausea [Recovering/Resolving]
  - Dizziness [Recovering/Resolving]
  - Cold sweat [Recovering/Resolving]
  - Rash pruritic [Recovering/Resolving]
  - Diarrhoea [Recovering/Resolving]
  - Off label use [None]

NARRATIVE: CASE EVENT DATE: 20241006
